FAERS Safety Report 12602555 (Version 3)
Quarter: 2017Q1

REPORT INFORMATION
  Report Type: Spontaneous
  Country: IT (occurrence: IT)
  Receive Date: 20160728
  Receipt Date: 20170210
  Transmission Date: 20170428
  Serious: Yes (Other)
  Sender: FDA-Public Use
  Company Number: IT-TEVA-679452ACC

PATIENT
  Age: 59 Year
  Sex: Female

DRUGS (5)
  1. ATENOLOLO RATIOPHARM [Suspect]
     Active Substance: ATENOLOL
     Dosage: 50 MILLIGRAM DAILY;
     Route: 048
  2. ATENOLOLO RATIOPHARM [Suspect]
     Active Substance: ATENOLOL
     Indication: CARDIAC FIBRILLATION
     Dosage: 100 MILLIGRAM DAILY;
     Route: 048
  3. CARVEDILOLO TEVA [Concomitant]
     Indication: HYPERTENSION
  4. AMIODARONE RATIOPHARM ITALIA [Suspect]
     Active Substance: AMIODARONE
     Indication: CARDIAC FIBRILLATION
     Dosage: 200 MILLIGRAM DAILY;
     Route: 048
     Dates: start: 2016, end: 20160504
  5. ENAPREN [Concomitant]
     Active Substance: ENALAPRIL MALEATE
     Indication: HYPERTENSION

REACTIONS (4)
  - Extrasystoles [Not Recovered/Not Resolved]
  - Heart rate irregular [Unknown]
  - Blood pressure increased [Unknown]
  - Bradycardia [Unknown]

NARRATIVE: CASE EVENT DATE: 2016
